FAERS Safety Report 18195691 (Version 1)
Quarter: 2020Q3

REPORT INFORMATION
  Report Type: Spontaneous
  Country: US (occurrence: US)
  Receive Date: 20200826
  Receipt Date: 20200826
  Transmission Date: 20201103
  Serious: No
  Sender: FDA-Public Use
  Company Number: US-BAUSCH-BL-2020-023424

PATIENT
  Age: 64 Year
  Sex: Female
  Weight: 56.3 kg

DRUGS (3)
  1. DIURIL [Suspect]
     Active Substance: CHLOROTHIAZIDE
     Indication: BLADDER DISORDER
     Dosage: STRENGTH: 250MG/5ML, DOSE REDUCED
     Route: 048
     Dates: start: 202007
  2. DIURIL [Suspect]
     Active Substance: CHLOROTHIAZIDE
     Indication: OEDEMA
     Dosage: STRENGTH: 250MG/5ML, START DATE: SOMETIME THIS YEAR
     Route: 048
     Dates: start: 2020, end: 202007
  3. DIURIL [Suspect]
     Active Substance: CHLOROTHIAZIDE
     Indication: RENAL DISORDER

REACTIONS (11)
  - Musculoskeletal stiffness [Unknown]
  - Headache [Unknown]
  - Sluggishness [Unknown]
  - Fluid retention [Unknown]
  - Bladder pain [Unknown]
  - Vision blurred [Unknown]
  - Feeling abnormal [Unknown]
  - Urinary tract infection [Unknown]
  - Ill-defined disorder [Unknown]
  - Intentional product use issue [Unknown]
  - Product availability issue [Unknown]

NARRATIVE: CASE EVENT DATE: 2020
